FAERS Safety Report 8580290-4 (Version None)
Quarter: 2012Q3

REPORT INFORMATION
  Report Type: 
  Country: None (occurrence: None)
  Receive Date: 20120808
  Receipt Date: 20120727
  Transmission Date: 20120928
  Serious: Yes (Death, Other)
  Sender: FDA-Public Use
  Company Number: US-BAYER-2011-049317

PATIENT
  Sex: Male

DRUGS (8)
  1. METOCLOPRAMIDE [Concomitant]
     Dosage: 10 MG, UNK
     Route: 048
  2. GADOLINIUM IN UNSPECIFIED DRUG [Suspect]
     Indication: NUCLEAR MAGNETIC RESONANCE IMAGING ABDOMINAL
     Dosage: UNK
     Route: 042
     Dates: start: 20061113
  3. OMNISCAN [Suspect]
     Indication: NUCLEAR MAGNETIC RESONANCE IMAGING
     Dosage: UNK
  4. KLOR-CON [Concomitant]
     Dosage: 20 MG, UNK
     Route: 048
  5. HECTOROL [Concomitant]
     Dosage: 2.5/100 MG
     Route: 048
  6. COUMADIN [Concomitant]
     Route: 048
  7. ASPIRIN [Concomitant]
     Dosage: 81 MG, UNK
     Route: 048
  8. GADOLINIUM IN UNSPECIFIED DRUG [Suspect]
     Indication: RENAL TRANSPLANT

REACTIONS (20)
  - MUSCLE CONTRACTURE [None]
  - LIMB DISCOMFORT [None]
  - EXTREMITY CONTRACTURE [None]
  - PAIN [None]
  - ANHEDONIA [None]
  - SKIN FIBROSIS [None]
  - GENERAL PHYSICAL HEALTH DETERIORATION [None]
  - MOBILITY DECREASED [None]
  - DEPRESSION [None]
  - ANXIETY [None]
  - GRIP STRENGTH DECREASED [None]
  - SKIN LESION [None]
  - JOINT CONTRACTURE [None]
  - ABASIA [None]
  - SKIN TIGHTNESS [None]
  - SKIN INDURATION [None]
  - SENSORY LOSS [None]
  - NEPHROGENIC SYSTEMIC FIBROSIS [None]
  - BALANCE DISORDER [None]
  - SKIN HYPERPIGMENTATION [None]
